FAERS Safety Report 7261959-0 (Version None)
Quarter: 2011Q1

REPORT INFORMATION
  Report Type: 
  Country: None (occurrence: None)
  Receive Date: 20110130
  Receipt Date: 20101213
  Transmission Date: 20110831
  Serious: No
  Sender: FDA-Public Use
  Company Number: US-ABBOTT-10P-163-0691169-00

PATIENT
  Age: 71 Year
  Sex: Male

DRUGS (3)
  1. HUMIRA [Suspect]
     Indication: PSORIASIS
     Dates: start: 20101101
  2. HYDROCODONE [Concomitant]
     Indication: PRODUCT USED FOR UNKNOWN INDICATION
     Dosage: 10/325 MG 1-3 TABLETS PRN DAILY
  3. HIGH BLOOD PRESSURE MEDICATION [Concomitant]
     Indication: PRODUCT USED FOR UNKNOWN INDICATION
     Dosage: PRESCRIBED EVERYDAY BUT HE ONLY TAKES IT ONCE A WEEK

REACTIONS (3)
  - NASOPHARYNGITIS [None]
  - PYREXIA [None]
  - COUGH [None]
